FAERS Safety Report 14591898 (Version 1)
Quarter: 2018Q1

REPORT INFORMATION
  Report Type: Spontaneous
  Country: FR (occurrence: FR)
  Receive Date: 20180302
  Receipt Date: 20180302
  Transmission Date: 20180509
  Serious: Yes (Hospitalization, Other)
  Sender: FDA-Public Use
  Company Number: FR-PFIZER INC-2018085387

PATIENT
  Age: 79 Year
  Sex: Female

DRUGS (2)
  1. COLCHICINE OPOCALCIUM [Suspect]
     Active Substance: COLCHICINE
     Indication: POLYARTHRITIS
     Dosage: 1 MG, DAILY
     Route: 048
     Dates: end: 20171219
  2. RAMIPRIL. [Suspect]
     Active Substance: RAMIPRIL
     Indication: HYPERTENSION
     Dosage: 1.25 MG, UNK
     Route: 048
     Dates: end: 20171219

REACTIONS (2)
  - Hypokalaemia [Recovered/Resolved]
  - Colitis [Recovering/Resolving]

NARRATIVE: CASE EVENT DATE: 20171215
